FAERS Safety Report 6366355-6 (Version None)
Quarter: 2009Q3

REPORT INFORMATION
  Report Type: 
  Country: None (occurrence: None)
  Receive Date: 20090921
  Receipt Date: 20090911
  Transmission Date: 20100115
  Serious: Yes (Other)
  Sender: FDA-Public Use
  Company Number: DE-AMGEN-US365256

PATIENT
  Age: 51 Year
  Sex: Male

DRUGS (3)
  1. ENBREL [Suspect]
     Indication: PSORIASIS
     Dosage: UNSPECIFIED
     Route: 065
  2. ADALIMUMAB [Suspect]
     Indication: PSORIASIS
     Route: 065
  3. INFLIXIMAB [Suspect]
     Indication: PSORIASIS
     Route: 065

REACTIONS (1)
  - MALIGNANT MELANOMA STAGE I [None]
